FAERS Safety Report 24839944 (Version 1)
Quarter: 2025Q1

REPORT INFORMATION
  Report Type: Spontaneous
  Country: FR (occurrence: FR)
  Receive Date: 20250114
  Receipt Date: 20250114
  Transmission Date: 20250408
  Serious: Yes (Disabling)
  Sender: DEXCEL
  Company Number: None

PATIENT
  Age: 35 Year
  Sex: Female
  Weight: 74 kg

DRUGS (1)
  1. CHLORHEXIDINE GLUCONATE [Suspect]
     Active Substance: CHLORHEXIDINE GLUCONATE
     Indication: Spinal anaesthesia
     Route: 037
     Dates: start: 20241002, end: 20241002

REACTIONS (5)
  - Myelitis [Not Recovered/Not Resolved]
  - Arachnoiditis [Not Recovered/Not Resolved]
  - Encephalitis toxic [Not Recovered/Not Resolved]
  - Cytotoxic lesions of corpus callosum [Not Recovered/Not Resolved]
  - Wrong product administered [Not Recovered/Not Resolved]

NARRATIVE: CASE EVENT DATE: 20241002
